FAERS Safety Report 23919920 (Version 2)
Quarter: 2024Q3

REPORT INFORMATION
  Report Type: Report from Study
  Country: GB (occurrence: GB)
  Receive Date: 20240530
  Receipt Date: 20240708
  Transmission Date: 20241017
  Serious: Yes (Other)
  Sender: TAKEDA
  Company Number: GB-TAKEDA-2024TUS022462

PATIENT
  Sex: Male

DRUGS (2)
  1. VEDOLIZUMAB [Suspect]
     Active Substance: VEDOLIZUMAB
     Indication: Colitis ulcerative
     Dosage: 108 MILLIGRAM, Q2WEEKS
     Route: 058
  2. VEDOLIZUMAB [Suspect]
     Active Substance: VEDOLIZUMAB
     Indication: Colitis ulcerative
     Dosage: 108 MILLIGRAM, Q2WEEKS
     Route: 058

REACTIONS (8)
  - Autism spectrum disorder [Unknown]
  - Influenza like illness [Not Recovered/Not Resolved]
  - Illness [Unknown]
  - Inappropriate schedule of product administration [Unknown]
  - Injection site discharge [Unknown]
  - Injection site pain [Unknown]
  - Malaise [Recovered/Resolved]
  - Nasal congestion [Not Recovered/Not Resolved]
